FAERS Safety Report 8392031-4 (Version None)
Quarter: 2012Q2

REPORT INFORMATION
  Report Type: 
  Country: None (occurrence: None)
  Receive Date: 20120529
  Receipt Date: 20120524
  Transmission Date: 20120825
  Serious: Yes (Other)
  Sender: FDA-Public Use
  Company Number: US-ROCHE-1066792

PATIENT
  Age: 62 Year
  Sex: Female
  Weight: 61.29 kg

DRUGS (1)
  1. XELODA [Suspect]
     Indication: BREAST CANCER METASTATIC
     Route: 048
     Dates: start: 20111001, end: 20120423

REACTIONS (3)
  - PULMONARY OEDEMA [None]
  - PAIN [None]
  - DYSPNOEA [None]
